FAERS Safety Report 4300423-5 (Version None)
Quarter: 2004Q1

REPORT INFORMATION
  Report Type: 
  Country: None (occurrence: None)
  Receive Date: 20040218
  Receipt Date: 20040203
  Transmission Date: 20041129
  Serious: Yes (Hospitalization)
  Sender: FDA-Public Use
  Company Number: GBS040114261

PATIENT
  Age: 67 Year
  Sex: Female
  Weight: 66 kg

DRUGS (2)
  1. RALOXIFENE HCL [Suspect]
     Dosage: 60 MG
     Dates: start: 20001026, end: 20030829
  2. DICLOFENAC [Concomitant]

REACTIONS (1)
  - OVARIAN ADENOMA [None]
